FAERS Safety Report 7345417-0 (Version None)
Quarter: 2011Q1

REPORT INFORMATION
  Report Type: 
  Country: None (occurrence: None)
  Receive Date: 20110310
  Receipt Date: 20110303
  Transmission Date: 20110831
  Serious: Yes (Hospitalization)
  Sender: FDA-Public Use
  Company Number: ES-ALLERGAN-1103142US

PATIENT
  Age: 80 Year
  Sex: Female

DRUGS (4)
  1. TROPICAMIDA [Suspect]
     Indication: CATARACT OPERATION
     Dosage: 1 DROP EVERY 10 MINUTES
     Dates: start: 20110122, end: 20110122
  2. ACULARA? [Suspect]
     Indication: CATARACT OPERATION
     Dosage: 1 DROP EVERY 10 MINUTES
     Route: 047
     Dates: start: 20110122, end: 20110122
  3. FENILEFRINA [Suspect]
     Indication: CATARACT OPERATION
     Dosage: UNK
     Route: 047
     Dates: start: 20110122
  4. ENALAPRIL MALEATE [Concomitant]
     Indication: HYPERTENSION

REACTIONS (6)
  - TONIC CLONIC MOVEMENTS [None]
  - AMNESIA [None]
  - INCONTINENCE [None]
  - INCOHERENT [None]
  - DEPRESSED LEVEL OF CONSCIOUSNESS [None]
  - EMOTIONAL DISORDER [None]
